FAERS Safety Report 7785332-1 (Version None)
Quarter: 2011Q3

REPORT INFORMATION
  Report Type: 
  Country: None (occurrence: None)
  Receive Date: 20110929
  Receipt Date: 20110926
  Transmission Date: 20111222
  Serious: No
  Sender: FDA-Public Use
  Company Number: US-PFIZER INC-2011229125

PATIENT
  Sex: Female

DRUGS (2)
  1. PRISTIQ [Suspect]
     Indication: BIPOLAR DISORDER
     Dosage: UNK
  2. XANAX [Concomitant]
     Dosage: UNK, 3X/DAY

REACTIONS (1)
  - DRUG INEFFECTIVE [None]
